FAERS Safety Report 5770703-5 (Version None)
Quarter: 2008Q2

REPORT INFORMATION
  Report Type: 
  Country: None (occurrence: None)
  Receive Date: 20080613
  Receipt Date: 20080508
  Transmission Date: 20081010
  Serious: No
  Sender: FDA-Public Use
  Company Number: US-ABBOTT-08P-163-0451260-00

PATIENT
  Sex: Female
  Weight: 50.394 kg

DRUGS (7)
  1. HUMIRA [Suspect]
     Indication: CROHN'S DISEASE
     Route: 058
     Dates: start: 20070501, end: 20070501
  2. HUMIRA [Suspect]
     Dosage: X 1
  3. HUMIRA [Suspect]
  4. ZEGERID [Concomitant]
     Indication: GASTROOESOPHAGEAL REFLUX DISEASE
     Route: 048
     Dates: start: 20050101
  5. SALBUTAMOL SULFATE [Concomitant]
     Indication: ASTHMA
     Route: 055
     Dates: start: 19990101
  6. SERETIDE [Concomitant]
     Indication: ASTHMA
     Route: 055
     Dates: start: 19990101
  7. CYANOCOBALAMIN [Concomitant]
     Indication: ILEECTOMY
     Route: 030
     Dates: start: 20020101

REACTIONS (2)
  - ABDOMINAL PAIN [None]
  - DIARRHOEA [None]
